FAERS Safety Report 13554807 (Version 4)
Quarter: 2018Q3

REPORT INFORMATION
  Report Type: Spontaneous
  Country: US (occurrence: US)
  Receive Date: 20170517
  Receipt Date: 20180919
  Transmission Date: 20181010
  Serious: Yes (Hospitalization, Disabling, Other)
  Sender: FDA-Public Use
  Company Number: US-EMD SERONO-7054283

PATIENT
  Age: 62 Year
  Sex: Female
  Weight: 60 kg

DRUGS (2)
  1. REBIF [Suspect]
     Active Substance: INTERFERON BETA-1A
     Indication: MULTIPLE SCLEROSIS
     Route: 058
     Dates: start: 20070730
  2. PREDNISONE. [Concomitant]
     Active Substance: PREDNISONE
     Indication: PREMEDICATION

REACTIONS (22)
  - Extremity contracture [Not Recovered/Not Resolved]
  - Asthenia [Unknown]
  - Hypotonia [Not Recovered/Not Resolved]
  - Arteriosclerosis [Unknown]
  - Peripheral vascular disorder [Unknown]
  - Post procedural infection [Unknown]
  - Transplant failure [Recovered/Resolved]
  - Intracranial aneurysm [Recovered/Resolved with Sequelae]
  - Hyperkeratosis [Recovered/Resolved]
  - Muscular weakness [Not Recovered/Not Resolved]
  - Incorrect dose administered [Unknown]
  - Cerebral infarction [Recovering/Resolving]
  - Limb injury [Not Recovered/Not Resolved]
  - Muscle spasms [Recovering/Resolving]
  - Pain in extremity [Not Recovered/Not Resolved]
  - Vascular graft thrombosis [Not Recovered/Not Resolved]
  - Laceration [Unknown]
  - Injection site extravasation [Unknown]
  - Peripheral swelling [Not Recovered/Not Resolved]
  - Hemiparesis [Recovering/Resolving]
  - Blood pressure increased [Not Recovered/Not Resolved]
  - Phantom pain [Recovering/Resolving]

NARRATIVE: CASE EVENT DATE: 20110129
